FAERS Safety Report 6123718-1 (Version None)
Quarter: 2009Q1

REPORT INFORMATION
  Report Type: 
  Country: None (occurrence: None)
  Receive Date: 20090318
  Receipt Date: 20090318
  Transmission Date: 20090719
  Serious: Yes (Hospitalization)
  Sender: FDA-Public Use
  Company Number: None

PATIENT
  Age: 59 Year

DRUGS (4)
  1. ZIPRASIDONE HCL [Suspect]
     Indication: PARANOIA
     Dosage: PO
     Route: 048
     Dates: start: 20081120, end: 20090120
  2. ZIPRASIDONE HCL [Suspect]
     Indication: SCHIZOPHRENIA
     Dosage: PO
     Route: 048
     Dates: start: 20081120, end: 20090120
  3. RISPERIDONE [Suspect]
     Indication: PARANOIA
     Dosage: 25 MG OTHER IM
     Route: 030
     Dates: start: 20070727, end: 20090113
  4. RISPERIDONE [Suspect]
     Indication: SCHIZOPHRENIA
     Dosage: 25 MG OTHER IM
     Route: 030
     Dates: start: 20070727, end: 20090113

REACTIONS (5)
  - BRADYKINESIA [None]
  - CLONUS [None]
  - COGWHEEL RIGIDITY [None]
  - MUSCULOSKELETAL STIFFNESS [None]
  - PARKINSONISM [None]
